FAERS Safety Report 12782720 (Version 1)
Quarter: 2016Q3

REPORT INFORMATION
  Report Type: Spontaneous
  Country: US (occurrence: US)
  Receive Date: 20160926
  Receipt Date: 20160926
  Transmission Date: 20161109
  Serious: Yes (Disabling)
  Sender: FDA-Public Use
  Company Number: None

PATIENT
  Age: 46 Year
  Sex: Female
  Weight: 77.85 kg

DRUGS (9)
  1. SABA NFUSE [Concomitant]
  2. SABA ACE [Concomitant]
  3. BENADRYL [Concomitant]
     Active Substance: DIPHENHYDRAMINE HYDROCHLORIDE
  4. SPIRONOLACTONE 25 MG TABLET RX NUMBER 05351 0646009 [Suspect]
     Active Substance: SPIRONOLACTONE
     Indication: ACNE
     Route: 048
     Dates: start: 20160712, end: 20160731
  5. CLINDAMYCIN PHOSP [Concomitant]
  6. SAVA LIFESTYLE PRO [Concomitant]
  7. MAXALT [Concomitant]
     Active Substance: RIZATRIPTAN BENZOATE
  8. SIMVASTATIN. [Concomitant]
     Active Substance: SIMVASTATIN
  9. IBUPROFEN. [Concomitant]
     Active Substance: IBUPROFEN

REACTIONS (5)
  - Musculoskeletal pain [None]
  - Pain in extremity [None]
  - Paraesthesia [None]
  - Arthralgia [None]
  - Hypoaesthesia [None]

NARRATIVE: CASE EVENT DATE: 20160721
